FAERS Safety Report 6504839-8 (Version None)
Quarter: 2009Q4

REPORT INFORMATION
  Report Type: 
  Country: None (occurrence: None)
  Receive Date: 20091218
  Receipt Date: 20091210
  Transmission Date: 20100525
  Serious: Yes (Hospitalization)
  Sender: FDA-Public Use
  Company Number: SE-ASTRAZENECA-2009SE31311

PATIENT
  Age: 82 Year
  Sex: Male

DRUGS (8)
  1. SELOKEN ZOC [Suspect]
     Route: 048
  2. KALCIPOS-D [Concomitant]
  3. FOLACIN [Concomitant]
  4. CHLOROMYCETIN [Concomitant]
  5. ACETAMINOPHEN [Concomitant]
  6. WARAN [Concomitant]
  7. DIGOXIN BIOPHAUSIA [Concomitant]
  8. 3 DRUG NOT SHOWN [Concomitant]

REACTIONS (1)
  - ORTHOSTATIC HYPOTENSION [None]
